FAERS Safety Report 5855798-2 (Version None)
Quarter: 2008Q3

REPORT INFORMATION
  Report Type: 
  Country: None (occurrence: None)
  Receive Date: 20080825
  Receipt Date: 20080515
  Transmission Date: 20090109
  Serious: No
  Sender: FDA-Public Use
  Company Number: US-KINGPHARMUSA00001-K200800568

PATIENT

DRUGS (2)
  1. SEPTRA [Suspect]
  2. AMNESTEEM [Suspect]

REACTIONS (1)
  - NODULE ON EXTREMITY [None]
